FAERS Safety Report 11745587 (Version 1)
Quarter: 2015Q4

REPORT INFORMATION
  Report Type: Spontaneous
  Country: GB (occurrence: GB)
  Receive Date: 20151117
  Receipt Date: 20151117
  Transmission Date: 20160304
  Serious: Yes (Hospitalization)
  Sender: FDA-Public Use
  Company Number: GB-TEVA-609725ISR

PATIENT
  Age: 50 Year
  Sex: Female

DRUGS (1)
  1. CICLOSPORIN [Suspect]
     Active Substance: CYCLOSPORINE
     Indication: BEHCET^S SYNDROME
     Dosage: 125 MILLIGRAM DAILY;
     Route: 065

REACTIONS (4)
  - Hemiparesis [Recovering/Resolving]
  - Coma scale abnormal [Recovering/Resolving]
  - Normochromic normocytic anaemia [Recovering/Resolving]
  - Encephalitis [Recovering/Resolving]
